FAERS Safety Report 9520533 (Version 3)
Quarter: 2014Q1

REPORT INFORMATION
  Report Type: Report from Study
  Country: DK (occurrence: DK)
  Receive Date: 20130913
  Receipt Date: 20140203
  Transmission Date: 20141002
  Serious: Yes (Hospitalization, Other)
  Sender: FDA-Public Use
  Company Number: DK-BIOGENIDEC-2012BI021877

PATIENT
  Age: 40 Year
  Sex: Female
  Weight: 72 kg

DRUGS (2)
  1. TYSABRI [Suspect]
     Indication: MULTIPLE SCLEROSIS
     Route: 042
     Dates: start: 20081105, end: 20101214
  2. IMUREL [Concomitant]

REACTIONS (1)
  - Renal cancer [Recovered/Resolved]
